FAERS Safety Report 17241584 (Version 1)
Quarter: 2020Q1

REPORT INFORMATION
  Report Type: Spontaneous
  Country: DE (occurrence: DE)
  Receive Date: 20200107
  Receipt Date: 20200107
  Transmission Date: 20200409
  Serious: Yes (Death, Other)
  Sender: FDA-Public Use
  Company Number: DE-AMGEN-DEUSP2020000740

PATIENT
  Age: 64 Year
  Sex: Female
  Weight: 77.5 kg

DRUGS (3)
  1. ASPIRIN. [Concomitant]
     Active Substance: ASPIRIN
     Indication: CORONARY ARTERY DISEASE
     Dosage: 100 MILLIGRAM, QD
     Dates: start: 20160328
  2. PARSABIV [Suspect]
     Active Substance: ETELCALCETIDE HYDROCHLORIDE
     Indication: HYPERPARATHYROIDISM
     Dosage: 5 MILLIGRAM, 3 TIMES/WK
     Route: 042
     Dates: start: 20180406, end: 20181003
  3. PARICALCITOL. [Concomitant]
     Active Substance: PARICALCITOL
     Indication: HYPERPARATHYROIDISM
     Dosage: 0.005 MILLIGRAM, 3 TIMES/WK
     Dates: start: 20180930, end: 20190622

REACTIONS (1)
  - Calciphylaxis [Fatal]

NARRATIVE: CASE EVENT DATE: 20190222
